FAERS Safety Report 6765932-8 (Version None)
Quarter: 2010Q2

REPORT INFORMATION
  Report Type: 
  Country: None (occurrence: None)
  Receive Date: 20100609
  Receipt Date: 20100603
  Transmission Date: 20101027
  Serious: Yes (Hospitalization)
  Sender: FDA-Public Use
  Company Number: UTC-001136

PATIENT
  Sex: Male

DRUGS (1)
  1. REMODULIN [Suspect]
     Dosage: 76.32 UG/KG (0.053 UG/KG, 1 IN 1 MIN), SUBCUTANEOUS
     Route: 058

REACTIONS (2)
  - DEHYDRATION [None]
  - HYPOTENSION [None]
